FAERS Safety Report 17606785 (Version 2)
Quarter: 2020Q2

REPORT INFORMATION
  Report Type: Report from Study
  Country: AU (occurrence: AU)
  Receive Date: 20200331
  Receipt Date: 20200407
  Transmission Date: 20200713
  Serious: Yes (Other)
  Sender: FDA-Public Use
  Company Number: AU-JNJFOC-20200330584

PATIENT
  Sex: Female
  Weight: 20 kg

DRUGS (1)
  1. REMICADE [Suspect]
     Active Substance: INFLIXIMAB
     Indication: PUSTULAR PSORIASIS
     Route: 042

REACTIONS (3)
  - Product use in unapproved indication [Unknown]
  - Pustular psoriasis [Unknown]
  - Off label use [Unknown]
